FAERS Safety Report 6812892-7 (Version None)
Quarter: 2010Q2

REPORT INFORMATION
  Report Type: 
  Country: None (occurrence: None)
  Receive Date: 20100628
  Receipt Date: 20100614
  Transmission Date: 20101027
  Serious: Yes (Hospitalization)
  Sender: FDA-Public Use
  Company Number: 2010AL000052

PATIENT
  Age: 70 Year
  Sex: Female
  Weight: 60.5 kg

DRUGS (11)
  1. PRALATREXATE (PRALATREXATE) [Suspect]
     Indication: MYCOSIS FUNGOIDES
     Dosage: 24 MG;QOW;IV
     Route: 042
     Dates: start: 20091209, end: 20100119
  2. LISINOPRIL [Concomitant]
  3. ASPIRIN [Concomitant]
  4. CARVEDILOL [Concomitant]
  5. DOCUSATE [Concomitant]
  6. DOXEPIN HCL [Concomitant]
  7. FOLIC ACID [Concomitant]
  8. MULTI-VITAMIN [Concomitant]
  9. CEPHALEXIN [Concomitant]
  10. HYDROCODONE BITARTRATE [Concomitant]
  11. PREV MEDS [Concomitant]

REACTIONS (11)
  - DRUG TOXICITY [None]
  - EXFOLIATIVE RASH [None]
  - HYPOPHAGIA [None]
  - MALAISE [None]
  - MYCOSIS FUNGOIDES [None]
  - NAUSEA [None]
  - NEOPLASM PROGRESSION [None]
  - SECRETION DISCHARGE [None]
  - SKIN EXFOLIATION [None]
  - SKIN ULCER [None]
  - WOUND SECRETION [None]
